FAERS Safety Report 25202626 (Version 1)
Quarter: 2025Q2

REPORT INFORMATION
  Report Type: Spontaneous
  Country: US (occurrence: US)
  Receive Date: 20250416
  Receipt Date: 20250416
  Transmission Date: 20250717
  Serious: No
  Sender: SANDOZ
  Company Number: US-SANDOZ-SDZ2025US023342

PATIENT
  Sex: Female

DRUGS (2)
  1. RECLAST [Suspect]
     Active Substance: ZOLEDRONIC ACID
     Indication: Product used for unknown indication
     Route: 065
     Dates: start: 20241023
  2. ZETIA [Suspect]
     Active Substance: EZETIMIBE
     Indication: Blood cholesterol
     Route: 065

REACTIONS (4)
  - Muscle spasms [Unknown]
  - Pain in extremity [Unknown]
  - Fatigue [Unknown]
  - Back pain [Unknown]
